APPROVED DRUG PRODUCT: BETHANECHOL CHLORIDE
Active Ingredient: BETHANECHOL CHLORIDE
Strength: 5MG
Dosage Form/Route: TABLET;ORAL
Application: A040721 | Product #001
Applicant: IMPAX LABORATORIES INC
Approved: Nov 1, 2006 | RLD: No | RS: No | Type: DISCN